FAERS Safety Report 8534878-7 (Version None)
Quarter: 2012Q3

REPORT INFORMATION
  Report Type: 
  Country: None (occurrence: None)
  Receive Date: 20120724
  Receipt Date: 20120720
  Transmission Date: 20120928
  Serious: Yes (Hospitalization)
  Sender: FDA-Public Use
  Company Number: IT-BAYER-2012-073039

PATIENT
  Age: 69 Year
  Sex: Female

DRUGS (5)
  1. VOLTAREN [Suspect]
     Indication: BACK PAIN
     Dosage: DAILY DOSE 75 MG
     Route: 048
     Dates: start: 20120701, end: 20120710
  2. ASPIRINA CON VITAMINA C [Suspect]
     Indication: BACK PAIN
     Dosage: DAILY DOSE 640 MG
     Route: 048
     Dates: start: 20120629, end: 20120630
  3. ESKIM [Concomitant]
     Dosage: DAILY DOSE 1 G
     Route: 048
     Dates: start: 20030701, end: 20120710
  4. NEBIVOLOL HCL [Concomitant]
     Indication: HYPERTENSION
     Dosage: DAILY DOSE 5 MG
     Route: 048
     Dates: start: 20030701, end: 20120710
  5. CARDURA [Concomitant]
     Indication: HYPERTENSION
     Dosage: DAILY DOSE 4 MG
     Route: 048
     Dates: start: 20050701, end: 20120510

REACTIONS (3)
  - MELAENA [None]
  - EROSIVE DUODENITIS [None]
  - GASTRIC ULCER [None]
